FAERS Safety Report 5449381-0 (Version None)
Quarter: 2007Q3

REPORT INFORMATION
  Report Type: 
  Country: None (occurrence: None)
  Receive Date: 20070911
  Receipt Date: 20070830
  Transmission Date: 20080115
  Serious: Yes (Other)
  Sender: FDA-Public Use
  Company Number: US-PFIZER INC-2007072905

PATIENT
  Sex: Female
  Weight: 52.2 kg

DRUGS (7)
  1. DILANTIN [Suspect]
     Indication: CONVULSION
  2. CHANTIX [Suspect]
     Indication: SMOKING CESSATION THERAPY
  3. TYLENOL (CAPLET) [Concomitant]
  4. BUPROPION HCL [Concomitant]
  5. FLUOXETINE [Concomitant]
  6. PREMARIN [Concomitant]
  7. VITAMIN CAP [Concomitant]

REACTIONS (9)
  - ANTICONVULSANT DRUG LEVEL DECREASED [None]
  - BACK INJURY [None]
  - CONVULSION [None]
  - FALL [None]
  - FATIGUE [None]
  - HEAD INJURY [None]
  - INTERVERTEBRAL DISC PROTRUSION [None]
  - MUSCULOSKELETAL STIFFNESS [None]
  - PAIN [None]
